FAERS Safety Report 19568762 (Version 2)
Quarter: 2022Q1

REPORT INFORMATION
  Report Type: Report from Study
  Country: DE (occurrence: DE)
  Receive Date: 20210714
  Receipt Date: 20220223
  Transmission Date: 20220423
  Serious: No
  Sender: FDA-Public Use
  Company Number: DE-IMMUNOMEDICS, INC.-2021IMMU000098

PATIENT
  Age: 54 Year
  Sex: Female
  Weight: 53 kg

DRUGS (9)
  1. SACITUZUMAB GOVITECAN [Suspect]
     Active Substance: SACITUZUMAB GOVITECAN
     Indication: Breast cancer metastatic
     Dosage: 10 MG/KG DAYS 1 AND 8 OF 21-DAYS CYCLE
     Route: 042
     Dates: start: 20200730, end: 20200730
  2. SACITUZUMAB GOVITECAN [Suspect]
     Active Substance: SACITUZUMAB GOVITECAN
     Dosage: 7.5 MG/KG DAYS 1 AND 8 OF 21-DAYS CYCLE
     Route: 042
     Dates: start: 20200819, end: 20200819
  3. SACITUZUMAB GOVITECAN [Suspect]
     Active Substance: SACITUZUMAB GOVITECAN
     Dosage: 7.5 MG/KG (397.5 MG) DAYS 1 AND 8 OF 21-DAYS CYCLE
     Route: 042
     Dates: start: 20210112, end: 20210112
  4. DURAGESIC [Concomitant]
     Active Substance: FENTANYL
     Indication: Pain
     Dosage: 2 MG EVERY 3 DAYS
     Route: 065
     Dates: start: 20200729, end: 20210217
  5. POLYETHYLENE GLYCOL 3350\POTASSIUM CHLORIDE\SODIUM BICARBONATE\SODIUM [Concomitant]
     Active Substance: POLYETHYLENE GLYCOL 3350\POTASSIUM CHLORIDE\SODIUM BICARBONATE\SODIUM CHLORIDE
  6. PANTOPRAZOLE AMNEAL [Concomitant]
     Indication: Prophylaxis
     Dosage: 40 MG, QD (1-0-0-0)
     Route: 048
     Dates: start: 20201114, end: 20210217
  7. SAB SIMPLEX [DIMETICONE] [Concomitant]
     Indication: Flatulence
     Dosage: 39 DRP, QD
     Route: 048
     Dates: start: 20210108, end: 20210217
  8. TORSEMIDE [Concomitant]
     Active Substance: TORSEMIDE
     Indication: Diuretic therapy
     Dosage: 5 MG, QD (2-0-0-0)
     Route: 065
     Dates: start: 20210121, end: 20210217
  9. OXYCODONE [Concomitant]
     Active Substance: OXYCODONE

REACTIONS (2)
  - Hepatic failure [Unknown]
  - Hepatorenal syndrome [Unknown]

NARRATIVE: CASE EVENT DATE: 20210205
